FAERS Safety Report 18005239 (Version 1)
Quarter: 2020Q3

REPORT INFORMATION
  Report Type: Spontaneous
  Country: RU (occurrence: RU)
  Receive Date: 20200710
  Receipt Date: 20200710
  Transmission Date: 20201103
  Serious: Yes (Other)
  Sender: FDA-Public Use
  Company Number: RU-ASTRAZENECA-2020SE85384

PATIENT
  Sex: Female

DRUGS (1)
  1. SEROQUEL [Suspect]
     Active Substance: QUETIAPINE FUMARATE
     Route: 048

REACTIONS (9)
  - Hunger [Unknown]
  - Memory impairment [Unknown]
  - Panic disorder [Unknown]
  - Intentional product misuse [Unknown]
  - Loss of consciousness [Unknown]
  - Dizziness [Unknown]
  - Sleep disorder [Unknown]
  - Syncope [Unknown]
  - Derealisation [Unknown]
